FAERS Safety Report 17625851 (Version 11)
Quarter: 2025Q2

REPORT INFORMATION
  Report Type: Report from Study
  Country: US (occurrence: US)
  Receive Date: 20200404
  Receipt Date: 20250617
  Transmission Date: 20250717
  Serious: Yes (Other)
  Sender: TAKEDA
  Company Number: US-SHIRE-US202012444

PATIENT
  Age: 68 Year
  Sex: Female
  Weight: 75 kg

DRUGS (25)
  1. HUMAN IMMUNOGLOBULIN G\HYALURONIDASE RECOMBINANT HUMAN [Suspect]
     Active Substance: HUMAN IMMUNOGLOBULIN G\HYALURONIDASE (HUMAN RECOMBINANT)
     Indication: Immunodeficiency common variable
     Dosage: 50 GRAM, Q4WEEKS
     Dates: start: 20190710
  2. HUMAN IMMUNOGLOBULIN G\HYALURONIDASE RECOMBINANT HUMAN [Suspect]
     Active Substance: HUMAN IMMUNOGLOBULIN G\HYALURONIDASE (HUMAN RECOMBINANT)
     Dosage: 50 GRAM, Q4WEEKS
  3. ACETAMINOPHEN [Concomitant]
     Active Substance: ACETAMINOPHEN
  4. SODIUM CHLORIDE [Concomitant]
     Active Substance: SODIUM CHLORIDE
  5. BUPROPION HYDROCHLORIDE [Concomitant]
     Active Substance: BUPROPION HYDROCHLORIDE
  6. XOLAIR [Concomitant]
     Active Substance: OMALIZUMAB
  7. ALLEGRA ALLERGY [Concomitant]
     Active Substance: FEXOFENADINE HYDROCHLORIDE
  8. TRIAMTERENE AND HYDROCHLOROTHIAZIDE [Concomitant]
     Active Substance: HYDROCHLOROTHIAZIDE\TRIAMTERENE
  9. VITAMIN B [Concomitant]
     Active Substance: VITAMIN B
  10. DIPHENHYDRAMINE [Concomitant]
     Active Substance: DIPHENHYDRAMINE
  11. Lmx [Concomitant]
  12. MONTELUKAST [Concomitant]
     Active Substance: MONTELUKAST
  13. DIPHENHYDRAMINE HYDROCHLORIDE [Concomitant]
     Active Substance: DIPHENHYDRAMINE HYDROCHLORIDE
  14. LIOTHYRONINE SODIUM [Concomitant]
     Active Substance: LIOTHYRONINE SODIUM
  15. XYZAL [Concomitant]
     Active Substance: LEVOCETIRIZINE DIHYDROCHLORIDE
  16. LEVOCETIRIZINE [Concomitant]
     Active Substance: LEVOCETIRIZINE
  17. LEVOTHYROXINE [Concomitant]
     Active Substance: LEVOTHYROXINE
  18. DOXEPIN [Concomitant]
     Active Substance: DOXEPIN
  19. EPINEPHRINE [Concomitant]
     Active Substance: EPINEPHRINE
  20. LIDOCAINE [Concomitant]
     Active Substance: LIDOCAINE
  21. VITAMIN B6 [Concomitant]
     Active Substance: PYRIDOXINE HYDROCHLORIDE
  22. VITAMIN D3 [Concomitant]
     Active Substance: CHOLECALCIFEROL
  23. VITAMIN B12 [Concomitant]
     Active Substance: CYANOCOBALAMIN
  24. BUPROPION [Concomitant]
     Active Substance: BUPROPION
  25. PYRIDOXINE [Concomitant]
     Active Substance: PYRIDOXINE

REACTIONS (20)
  - Lower respiratory tract infection [Unknown]
  - Pain [Unknown]
  - Mood swings [Unknown]
  - Multiple allergies [Unknown]
  - Feeling abnormal [Unknown]
  - Seasonal allergy [Unknown]
  - Nasopharyngitis [Unknown]
  - Allergy to plants [Unknown]
  - Allergy to animal [Unknown]
  - Mood altered [Unknown]
  - Depressed mood [Unknown]
  - Menopausal symptoms [Unknown]
  - Irritability [Unknown]
  - Pruritus [Unknown]
  - Malaise [Unknown]
  - Infusion site pain [Not Recovered/Not Resolved]
  - Infusion site erythema [Not Recovered/Not Resolved]
  - Erythema [Unknown]
  - Fatigue [Unknown]
  - Headache [Unknown]

NARRATIVE: CASE EVENT DATE: 20221201
